FAERS Safety Report 6424909-2 (Version None)
Quarter: 2009Q4

REPORT INFORMATION
  Report Type: 
  Country: None (occurrence: None)
  Receive Date: 20091029
  Receipt Date: 20091016
  Transmission Date: 20100525
  Serious: Yes (Other)
  Sender: FDA-Public Use
  Company Number: 2009US003230

PATIENT
  Sex: Male

DRUGS (5)
  1. PROGRAF [Suspect]
     Indication: RENAL AND PANCREAS TRANSPLANT
     Dosage: ORAL; 4 MG, BID, ORAL
     Route: 048
     Dates: start: 20040501
  2. CALCIUM (CALCIUM) [Concomitant]
  3. VITAMINS NOS (VITAMINS NOS) [Concomitant]
  4. PREDNISONE TAB [Concomitant]
  5. MYCOPHENOLATE MOFETIL (MMF) (MYCOPHENOLATE MOFETIL) [Concomitant]

REACTIONS (3)
  - DRUG LEVEL DECREASED [None]
  - PANCREAS TRANSPLANT REJECTION [None]
  - THERAPEUTIC RESPONSE DECREASED [None]
